FAERS Safety Report 12719585 (Version 2)
Quarter: 2016Q3

REPORT INFORMATION
  Report Type: Report from Study
  Country: MX (occurrence: MX)
  Receive Date: 20160907
  Receipt Date: 20160919
  Transmission Date: 20161109
  Serious: Yes (Hospitalization, Other)
  Sender: FDA-Public Use
  Company Number: PHHY2016MX089944

PATIENT
  Age: 51 Year
  Sex: Female
  Weight: 62 kg

DRUGS (8)
  1. ULTIBRO BREEZHALER [Suspect]
     Active Substance: GLYCOPYRRONIUM\INDACATEROL
     Indication: PULMONARY FIBROSIS
     Dosage: 1 DF(50 UG), QD
     Route: 055
     Dates: start: 201511
  2. SERETIDE [Concomitant]
     Active Substance: FLUTICASONE PROPIONATE\SALMETEROL XINAFOATE
     Indication: PULMONARY FIBROSIS
     Dosage: 550 MG, QD (STARTED 5 YEARS AGO)
     Route: 055
  3. THEOPHYLLINE [Concomitant]
     Active Substance: THEOPHYLLINE ANHYDROUS
     Indication: PULMONARY FIBROSIS
     Dosage: 1 DF, QD (STARTED 5 YEARS AGO)
     Route: 055
  4. ULTIBRO BREEZHALER [Suspect]
     Active Substance: GLYCOPYRRONIUM\INDACATEROL
     Indication: BRONCHOSPASM
  5. BECLOMETHASONE//BECLOMETASONE DIPROPIONATE [Concomitant]
     Active Substance: BECLOMETHASONE DIPROPIONATE
     Indication: PULMONARY FIBROSIS
     Dosage: 2 DF (2 SHOTS), Q12H (STARTED 3 YEARS AGO)
     Route: 055
  6. IPRATROPIUM [Concomitant]
     Active Substance: IPRATROPIUM
     Indication: PULMONARY FIBROSIS
     Dosage: 1 DF, QD (STARTED 5 YEARS AGO)
     Route: 055
  7. RISEDRONIC ACID [Concomitant]
     Active Substance: RISEDRONIC ACID
     Indication: OSTEOPENIA
     Dosage: 1 DF, QD (STARTED 1 YEAR AGO)
     Route: 048
  8. DEFLAZACORT [Concomitant]
     Active Substance: DEFLAZACORT
     Indication: PULMONARY FIBROSIS
     Dosage: 6 MG, QD (STARTED 3 YEARS AGO)
     Route: 048

REACTIONS (15)
  - Haemorrhoids [Unknown]
  - Tachycardia [Unknown]
  - Lung disorder [Recovered/Resolved]
  - Condition aggravated [Not Recovered/Not Resolved]
  - Tachycardia [Recovered/Resolved]
  - Lung infection [Recovered/Resolved]
  - Speech disorder [Recovered/Resolved]
  - Musculoskeletal pain [Recovered/Resolved]
  - Chest pain [Not Recovered/Not Resolved]
  - Exposure to toxic agent [Unknown]
  - Rectal abscess [Recovered/Resolved]
  - Oropharyngeal discomfort [Not Recovered/Not Resolved]
  - Cough [Not Recovered/Not Resolved]
  - Product use issue [Not Recovered/Not Resolved]
  - Pulmonary fibrosis [Not Recovered/Not Resolved]

NARRATIVE: CASE EVENT DATE: 201511
